FAERS Safety Report 14350834 (Version 5)
Quarter: 2018Q2

REPORT INFORMATION
  Report Type: Spontaneous
  Country: US (occurrence: US)
  Receive Date: 20180104
  Receipt Date: 20180417
  Transmission Date: 20180711
  Serious: Yes (Hospitalization, Other)
  Sender: FDA-Public Use
  Company Number: US-AMGEN-USASP2017191533

PATIENT
  Age: 61 Year
  Sex: Male
  Weight: 140.7 kg

DRUGS (5)
  1. PARSABIV [Suspect]
     Active Substance: ETELCALCETIDE HYDROCHLORIDE
     Indication: HYPERPARATHYROIDISM SECONDARY
     Dosage: 5 MG, 3 TIMES/WK
     Route: 042
     Dates: start: 20171101, end: 20171127
  2. FOSRENOL [Concomitant]
     Active Substance: LANTHANUM CARBONATE
     Dosage: 1000 MG, TID
     Route: 048
     Dates: start: 20171211
  3. ELIQUIS [Concomitant]
     Active Substance: APIXABAN
     Dosage: 5 MG, BID
     Route: 048
     Dates: start: 20171211
  4. TYLENOL [Concomitant]
     Active Substance: ACETAMINOPHEN
     Dosage: 650 MG, Q6H (AS NECESSARY)
     Route: 048
     Dates: start: 20171211
  5. COLACE [Concomitant]
     Active Substance: DOCUSATE SODIUM
     Dosage: 100 MG, BID (AS NECESSARY)
     Route: 048
     Dates: start: 20171211

REACTIONS (22)
  - Mobility decreased [Unknown]
  - Cough [Unknown]
  - Cervical spinal stenosis [Unknown]
  - Motor dysfunction [Unknown]
  - Treatment noncompliance [Unknown]
  - Arthralgia [Unknown]
  - Stress [Recovered/Resolved]
  - Fatigue [Unknown]
  - Dry skin [Unknown]
  - Fall [Unknown]
  - Hyperkalaemia [Unknown]
  - Gait disturbance [Unknown]
  - Osteoarthritis [Unknown]
  - Hypocalcaemia [Recovering/Resolving]
  - Dyspnoea [Unknown]
  - Joint stiffness [Unknown]
  - Orthopnoea [Unknown]
  - Oedema peripheral [Unknown]
  - Anxiety [Unknown]
  - Hypothyroidism [Unknown]
  - Dyspnoea paroxysmal nocturnal [Unknown]
  - Blood pressure increased [Recovered/Resolved]

NARRATIVE: CASE EVENT DATE: 2017
